FAERS Safety Report 4699557-5 (Version None)
Quarter: 2005Q2

REPORT INFORMATION
  Report Type: 
  Country: None (occurrence: None)
  Receive Date: 20050622
  Receipt Date: 20050610
  Transmission Date: 20051028
  Serious: Yes (Other)
  Sender: FDA-Public Use
  Company Number: GBWYE738513JUN05

PATIENT
  Age: 32 Year
  Sex: Male

DRUGS (3)
  1. EFFEXOR [Suspect]
     Dosage: 150MG , ORAL
     Route: 048
     Dates: end: 20040501
  2. EFFEXOR [Suspect]
     Dosage: 150MG , ORAL
     Route: 048
     Dates: start: 20041101
  3. BETAHISTINE (BETAHISTINE) [Concomitant]

REACTIONS (1)
  - CEREBELLAR ATAXIA [None]
